FAERS Safety Report 5394444-1 (Version None)
Quarter: 2007Q3

REPORT INFORMATION
  Report Type: 
  Country: None (occurrence: None)
  Receive Date: 20070723
  Receipt Date: 20070625
  Transmission Date: 20080115
  Serious: No
  Sender: FDA-Public Use
  Company Number: US-AMGEN-US229354

PATIENT
  Sex: Female

DRUGS (8)
  1. VECTIBIX [Suspect]
     Indication: COLORECTAL CANCER
     Route: 042
     Dates: start: 20070606
  2. LEUCOVORIN CALCIUM [Concomitant]
     Route: 065
     Dates: start: 20070606
  3. UNSPECIFIED TOPICAL PRODUCT [Concomitant]
     Route: 061
  4. IRINOTECAN HCL [Concomitant]
     Route: 065
     Dates: start: 20070606
  5. FLUOROURACIL [Concomitant]
     Route: 065
     Dates: start: 20070606
  6. ZOFRAN [Concomitant]
     Route: 065
     Dates: start: 20070606
  7. ATIVAN [Concomitant]
     Route: 065
     Dates: start: 20070606
  8. DECADRON [Concomitant]
     Route: 065
     Dates: start: 20070606

REACTIONS (1)
  - RASH GENERALISED [None]
